FAERS Safety Report 6501868-5 (Version None)
Quarter: 2009Q4

REPORT INFORMATION
  Report Type: 
  Country: None (occurrence: None)
  Receive Date: 20091216
  Receipt Date: 20091210
  Transmission Date: 20100525
  Serious: No
  Sender: FDA-Public Use
  Company Number: US-B.I. PHARMACEUTICALS,INC./RIDGEFIELD-2009-BP-12390BP

PATIENT
  Sex: Female

DRUGS (5)
  1. CATAPRES-TTS-1 [Suspect]
     Indication: HYPERTENSION
     Dosage: 0.3 MG
     Route: 061
  2. PLAVIX [Concomitant]
  3. ZOLIPIDEM [Concomitant]
  4. HYDRALAZINE HCL [Concomitant]
  5. AMLODIPINE [Concomitant]

REACTIONS (1)
  - HYPERTENSION [None]
